FAERS Safety Report 8087276-7 (Version None)
Quarter: 2012Q1

REPORT INFORMATION
  Report Type: 
  Country: None (occurrence: None)
  Receive Date: 20120128
  Receipt Date: 20110513
  Transmission Date: 20120608
  Serious: No
  Sender: FDA-Public Use
  Company Number: US-ABBOTT-11P-163-0725865-00

PATIENT
  Sex: Female

DRUGS (7)
  1. HYDROCODONE BITARTRATE [Concomitant]
     Indication: PAIN
  2. HUMIRA [Suspect]
     Indication: RHEUMATOID ARTHRITIS
     Dates: start: 20110430
  3. LISINOPRIL [Concomitant]
     Indication: LUNG DISORDER
  4. ALBUTEROL [Concomitant]
     Indication: CHRONIC OBSTRUCTIVE PULMONARY DISEASE
  5. GLUCAPHAGE [Concomitant]
     Indication: DIABETES MELLITUS
  6. IPRATROPIUM BROMIDE [Concomitant]
     Indication: CHRONIC OBSTRUCTIVE PULMONARY DISEASE
  7. FUROSEMIDE [Concomitant]
     Indication: FLUID RETENTION

REACTIONS (1)
  - MUCOUS MEMBRANE DISORDER [None]
